FAERS Safety Report 4543246-4 (Version None)
Quarter: 2004Q4

REPORT INFORMATION
  Report Type: 
  Country: None (occurrence: None)
  Receive Date: 20041229
  Receipt Date: 20041215
  Transmission Date: 20050328
  Serious: Yes (Hospitalization)
  Sender: FDA-Public Use
  Company Number: A-CH2004-08395

PATIENT
  Age: 65 Year
  Sex: Female

DRUGS (2)
  1. TRACLEER [Suspect]
     Indication: RAYNAUD'S PHENOMENON
     Dosage: ORAL
     Route: 048
     Dates: start: 20041012, end: 20041021
  2. OMEPRAZOLE [Concomitant]

REACTIONS (4)
  - AFFECT LABILITY [None]
  - ARTHRALGIA [None]
  - CONDITION AGGRAVATED [None]
  - MYALGIA [None]
